FAERS Safety Report 14762974 (Version 2)
Quarter: 2018Q2

REPORT INFORMATION
  Report Type: Other
  Country: DE (occurrence: DE)
  Receive Date: 20180416
  Receipt Date: 20180417
  Transmission Date: 20180711
  Serious: Yes (Hospitalization, Other)
  Sender: FDA-Public Use
  Company Number: DE-DEXPHARM-20180226

PATIENT
  Age: 64 Year
  Sex: Female
  Weight: 90 kg

DRUGS (12)
  1. KATADOLON S LONG 400 MG TABETTEN AWD [Suspect]
     Active Substance: FLUPIRTINE MALEATE
     Indication: PAIN
     Dosage: NI
     Route: 048
     Dates: start: 20080227, end: 20080407
  2. CALCIUM/VITAMIN D [Concomitant]
     Active Substance: CALCIUM\VITAMIN D
     Dosage: NI
  3. TRAMADOLOR HEXEL (TRAMADOL HYDROCHLORIDE) [Suspect]
     Active Substance: TRAMADOL HYDROCHLORIDE
     Indication: PAIN
     Dosage: NI
     Route: 048
     Dates: start: 20080227, end: 20080407
  4. L-THYROXIN [Concomitant]
     Active Substance: LEVOTHYROXINE SODIUM
     Dosage: NI
  5. SIMVASTATIN. [Suspect]
     Active Substance: SIMVASTATIN
     Indication: PRODUCT USED FOR UNKNOWN INDICATION
     Dosage: NI
     Route: 065
  6. MACROGOL [Concomitant]
     Active Substance: POLYETHYLENE GLYCOLS
     Dosage: NI
  7. IBUPROFEN. [Concomitant]
     Active Substance: IBUPROFEN
     Indication: PRODUCT USED FOR UNKNOWN INDICATION
     Dosage: NI
  8. FLUPIRTIN MALEAT [Suspect]
     Active Substance: FLUPIRTINE MALEATE
     Indication: OSTEOPOROSIS
     Dosage: NI
     Route: 065
  9. METAMIZOLE [Concomitant]
     Active Substance: METAMIZOLE
     Indication: PRODUCT USED FOR UNKNOWN INDICATION
     Dosage: NI
  10. OMEPRAZOLE. [Suspect]
     Active Substance: OMEPRAZOLE
     Indication: PRODUCT USED FOR UNKNOWN INDICATION
     Dosage: NI
     Route: 065
  11. CELEBREX [Suspect]
     Active Substance: CELECOXIB
     Indication: PAIN
     Dosage: NI
     Route: 048
     Dates: start: 20080227, end: 20080407
  12. DICLOFENAC [Concomitant]
     Active Substance: DICLOFENAC
     Indication: PRODUCT USED FOR UNKNOWN INDICATION
     Dosage: NI

REACTIONS (2)
  - Hepatic necrosis [Recovered/Resolved with Sequelae]
  - Drug-induced liver injury [Recovering/Resolving]

NARRATIVE: CASE EVENT DATE: 20080408
